FAERS Safety Report 6336176-9 (Version None)
Quarter: 2009Q3

REPORT INFORMATION
  Report Type: 
  Country: None (occurrence: None)
  Receive Date: 20090901
  Receipt Date: 20090821
  Transmission Date: 20100115
  Serious: Yes (Death, Hospitalization)
  Sender: FDA-Public Use
  Company Number: ES-BAYER-200929247GPV

PATIENT
  Age: 15 Year
  Sex: Male
  Weight: 90 kg

DRUGS (5)
  1. ADALAT [Suspect]
     Indication: HYPERTENSION
     Dosage: TOTAL DAILY DOSE: 30 MG  UNIT DOSE: 30 MG
     Route: 048
     Dates: start: 20090501, end: 20090602
  2. CANCIDAS [Suspect]
     Indication: LUNG INFECTION
     Dosage: TOTAL DAILY DOSE: 50 MG  UNIT DOSE: 50 MG
     Route: 042
     Dates: start: 20090501, end: 20090602
  3. CEFEPIMA [Suspect]
     Indication: LUNG INFECTION
     Dosage: TOTAL DAILY DOSE: 4 G  UNIT DOSE: 2 G
     Route: 042
     Dates: start: 20090501, end: 20090602
  4. SIMULECT [Suspect]
     Indication: ACUTE GRAFT VERSUS HOST DISEASE
     Dosage: TOTAL DAILY DOSE: 60 MG  UNIT DOSE: 20 MG
     Route: 042
     Dates: start: 20090401, end: 20090501
  5. KEPPRA [Suspect]
     Indication: CONVULSION PROPHYLAXIS
     Dosage: TOTAL DAILY DOSE: 2 G  UNIT DOSE: 1 G
     Route: 048
     Dates: start: 20090301, end: 20090602

REACTIONS (1)
  - TOXIC EPIDERMAL NECROLYSIS [None]
